FAERS Safety Report 4765682-3 (Version None)
Quarter: 2005Q3

REPORT INFORMATION
  Report Type: 
  Country: None (occurrence: None)
  Receive Date: 20050908
  Receipt Date: 20050908
  Transmission Date: 20060218
  Serious: Yes (Hospitalization)
  Sender: FDA-Public Use
  Company Number: None

PATIENT
  Sex: Female

DRUGS (1)
  1. ACITRETIN [Suspect]
     Indication: PUSTULAR PSORIASIS
     Dates: start: 20050608, end: 20050610

REACTIONS (3)
  - DIARRHOEA [None]
  - PEMPHIGOID [None]
  - POLLAKIURIA [None]
